FAERS Safety Report 5359446-X (Version None)
Quarter: 2007Q2

REPORT INFORMATION
  Report Type: 
  Country: None (occurrence: None)
  Receive Date: 20070615
  Receipt Date: 20070605
  Transmission Date: 20071010
  Serious: Yes (Hospitalization, Other)
  Sender: FDA-Public Use
  Company Number: JP-PFIZER INC-2007042696

PATIENT
  Sex: Male

DRUGS (6)
  1. NORVASC [Suspect]
     Indication: HYPERTENSION
     Route: 048
     Dates: start: 20060501, end: 20070501
  2. NORVASC [Suspect]
     Dosage: DAILY DOSE:120MG-FREQ:ONCE
     Route: 048
  3. IBUPROFEN [Suspect]
     Route: 048
  4. LUVOX [Concomitant]
     Dates: start: 20061201, end: 20070501
  5. PAXIL [Concomitant]
  6. LOMERIZINE HYDROCHLORIDE [Concomitant]

REACTIONS (5)
  - BLOOD CREATINE PHOSPHOKINASE INCREASED [None]
  - BLOOD PRESSURE DECREASED [None]
  - INTENTIONAL OVERDOSE [None]
  - NAUSEA [None]
  - SUICIDE ATTEMPT [None]
